FAERS Safety Report 6733310-3 (Version None)
Quarter: 2010Q2

REPORT INFORMATION
  Report Type: 
  Country: None (occurrence: None)
  Receive Date: 20100520
  Receipt Date: 20100511
  Transmission Date: 20101027
  Serious: Yes (Other)
  Sender: FDA-Public Use
  Company Number: SE-PFIZER INC-2010058944

PATIENT
  Age: 63 Year
  Sex: Female

DRUGS (4)
  1. NORVASC [Suspect]
     Dosage: 5 MG, 1X/DAY
     Dates: start: 20091001
  2. OMEPRAZOLE [Concomitant]
     Dosage: UNK
  3. POTASSIUM CHLORIDE [Concomitant]
     Dosage: UNK
  4. ATACAND [Concomitant]
     Dosage: UNK

REACTIONS (1)
  - BLOOD POTASSIUM DECREASED [None]
